FAERS Safety Report 5684279-4 (Version None)
Quarter: 2008Q1

REPORT INFORMATION
  Report Type: 
  Country: None (occurrence: None)
  Receive Date: 20080327
  Receipt Date: 20080327
  Transmission Date: 20080703
  Serious: Yes (Life-Threatening, Hospitalization)
  Sender: FDA-Public Use
  Company Number: None

PATIENT
  Age: 65 Year
  Sex: Male
  Weight: 72.2 kg

DRUGS (1)
  1. PACLITAXEL [Suspect]
     Indication: DRUG THERAPY
     Dosage: 95MG  OTHER  IV
     Route: 042
     Dates: start: 20071003, end: 20071003

REACTIONS (6)
  - ABDOMINAL PAIN [None]
  - FLUSHING [None]
  - HYPERHIDROSIS [None]
  - HYPOTENSION [None]
  - INFUSION RELATED REACTION [None]
  - TACHYCARDIA [None]
